APPROVED DRUG PRODUCT: CEFOXITIN
Active Ingredient: CEFOXITIN SODIUM
Strength: EQ 2GM BASE/VIAL
Dosage Form/Route: INJECTABLE;INJECTION
Application: A065313 | Product #002
Applicant: HOSPIRA INC
Approved: Jan 23, 2006 | RLD: No | RS: No | Type: DISCN